FAERS Safety Report 22590173 (Version 1)
Quarter: 2023Q2

REPORT INFORMATION
  Report Type: Other
  Country: US (occurrence: None)
  Receive Date: 20230612
  Receipt Date: 20230612
  Transmission Date: 20230721
  Serious: No
  Sender: FDA-Public Use
  Company Number: US-ROCHE-3363050

PATIENT
  Age: 62 Year
  Sex: Male

DRUGS (2)
  1. OCREVUS [Suspect]
     Active Substance: OCRELIZUMAB
     Indication: Multiple sclerosis
     Dosage: THEN 600 MG EVERY 6 MONTHS, DATE OF TREATMENT: 10/FEB/2021, 07/FEB/2023
     Route: 042
     Dates: start: 20180808, end: 202302
  2. TYSABRI [Concomitant]
     Active Substance: NATALIZUMAB

REACTIONS (1)
  - JC polyomavirus test positive [Unknown]
